FAERS Safety Report 6050174-4 (Version None)
Quarter: 2009Q1

REPORT INFORMATION
  Report Type: 
  Country: None (occurrence: None)
  Receive Date: 20090121
  Receipt Date: 20090108
  Transmission Date: 20090719
  Serious: Yes (Hospitalization, Other)
  Sender: FDA-Public Use
  Company Number: 2007AP000945

PATIENT
  Age: 58 Year
  Sex: Male

DRUGS (7)
  1. PRAVASTATIN SODIUM [Suspect]
  2. SIMVASTATIN [Suspect]
  3. BISOPROLOL FUMARATE [Concomitant]
  4. RAMIPRIL [Concomitant]
  5. SPIRONOLACTONE [Concomitant]
  6. AMLODIPINE [Concomitant]
  7. WARFARIN SODIUM [Concomitant]

REACTIONS (20)
  - AXONAL NEUROPATHY [None]
  - BACK PAIN [None]
  - C-REACTIVE PROTEIN INCREASED [None]
  - CSF PROTEIN INCREASED [None]
  - DRUG HYPERSENSITIVITY [None]
  - DYSPNOEA [None]
  - EOSINOPHILIA [None]
  - FATIGUE [None]
  - GUILLAIN-BARRE SYNDROME [None]
  - HAEMOGLOBIN DECREASED [None]
  - HYPOAESTHESIA [None]
  - HYPONATRAEMIA [None]
  - HYPOREFLEXIA [None]
  - INHIBITORY DRUG INTERACTION [None]
  - INTERNATIONAL NORMALISED RATIO INCREASED [None]
  - MUSCULAR WEAKNESS [None]
  - NEPHRITIS ALLERGIC [None]
  - RECTAL HAEMORRHAGE [None]
  - RENAL FAILURE [None]
  - SENSORY LOSS [None]
